FAERS Safety Report 20645249 (Version 1)
Quarter: 2022Q1

REPORT INFORMATION
  Report Type: Spontaneous
  Country: JP (occurrence: JP)
  Receive Date: 20220328
  Receipt Date: 20220328
  Transmission Date: 20220423
  Serious: Yes (Other)
  Sender: FDA-Public Use
  Company Number: JP-CELGENE-JPN-20210900387

PATIENT
  Sex: Male

DRUGS (2)
  1. REVLIMID [Suspect]
     Active Substance: LENALIDOMIDE
     Indication: Plasma cell myeloma
     Dosage: DAILY DOSE : 3 CAPSULE?FREQUENCY TEXT: UNKNOWN?3 CAPSULE
     Route: 048
     Dates: end: 20210807
  2. REVLIMID [Suspect]
     Active Substance: LENALIDOMIDE
     Dosage: DAILY DOSE : 3 CAPSULE?FREQUENCY TEXT: UNKNOWN?3 CAPSULE
     Route: 048
     Dates: start: 20210810, end: 202108

REACTIONS (1)
  - Dementia [Unknown]
